FAERS Safety Report 23668735 (Version 1)
Quarter: 2024Q1

REPORT INFORMATION
  Report Type: Spontaneous
  Country: CA (occurrence: CA)
  Receive Date: 20240325
  Receipt Date: 20240325
  Transmission Date: 20240410
  Serious: Yes (Disabling, Other)
  Sender: FDA-Public Use
  Company Number: CA-BRISTOL-MYERS SQUIBB COMPANY-2024-046516

PATIENT
  Age: 78 Year
  Sex: Female

DRUGS (8)
  1. PACLITAXEL [Suspect]
     Active Substance: PACLITAXEL
     Indication: Diffuse large B-cell lymphoma
     Dosage: LIQUID INTRAVENOUS
     Route: 048
  2. CISPLATIN\PACLITAXEL [Concomitant]
     Active Substance: CISPLATIN\PACLITAXEL
     Indication: Non-Hodgkin^s lymphoma
     Route: 042
  3. CISPLATIN\PACLITAXEL [Concomitant]
     Active Substance: CISPLATIN\PACLITAXEL
     Route: 048
  4. DEXAMETHASONE [Concomitant]
     Active Substance: DEXAMETHASONE
     Indication: Non-Hodgkin^s lymphoma
     Route: 042
  5. GEMCITABINE [Concomitant]
     Active Substance: GEMCITABINE
     Indication: Non-Hodgkin^s lymphoma
     Route: 042
  6. KYMRIAH [Concomitant]
     Active Substance: TISAGENLECLEUCEL
     Indication: Non-Hodgkin^s lymphoma
     Route: 042
  7. KYMRIAH [Concomitant]
     Active Substance: TISAGENLECLEUCEL
     Indication: Diffuse large B-cell lymphoma
  8. CYCLOPHOSPHAMIDE;DOXORUBICIN HYDROCHLORIDE;PREDNISONE;RITUXIMAB;VINCRI [Concomitant]
     Indication: Non-Hodgkin^s lymphoma
     Route: 042

REACTIONS (5)
  - Second primary malignancy [Not Recovered/Not Resolved]
  - White blood cell count increased [Not Recovered/Not Resolved]
  - Acute monocytic leukaemia [Not Recovered/Not Resolved]
  - Adverse event [Not Recovered/Not Resolved]
  - Off label use [Unknown]
